FAERS Safety Report 7213442-6 (Version None)
Quarter: 2011Q1

REPORT INFORMATION
  Report Type: 
  Country: None (occurrence: None)
  Receive Date: 20110106
  Receipt Date: 20101230
  Transmission Date: 20110831
  Serious: Yes (Other)
  Sender: FDA-Public Use
  Company Number: CN-JNJFOC-20110100005

PATIENT
  Age: 10 Month
  Sex: Female
  Weight: 10 kg

DRUGS (3)
  1. TOPAMAX [Suspect]
     Indication: EPILEPSY
     Route: 048
  2. TOPAMAX [Suspect]
     Route: 048
  3. TOPAMAX [Suspect]
     Route: 048

REACTIONS (6)
  - DRUG PRESCRIBING ERROR [None]
  - ASTHENIA [None]
  - DISTURBANCE IN ATTENTION [None]
  - WRONG TECHNIQUE IN DRUG USAGE PROCESS [None]
  - SLOW RESPONSE TO STIMULI [None]
  - FATIGUE [None]
